FAERS Safety Report 16470106 (Version 1)
Quarter: 2019Q2

REPORT INFORMATION
  Report Type: Spontaneous
  Country: US (occurrence: US)
  Receive Date: 20190624
  Receipt Date: 20190624
  Transmission Date: 20190711
  Serious: Yes (Hospitalization, Other)
  Sender: FDA-Public Use
  Company Number: US-TASMAN PHARMA, INC.-2019TSM00046

PATIENT
  Age: 26 Year
  Sex: Male

DRUGS (7)
  1. CLOZAPINE. [Suspect]
     Active Substance: CLOZAPINE
     Route: 065
  2. TRAZODONE [Concomitant]
     Active Substance: TRAZODONE HYDROCHLORIDE
     Route: 065
  3. VALPROIC ACID. [Concomitant]
     Active Substance: VALPROIC ACID
     Route: 065
  4. LACOSAMIDE. [Concomitant]
     Active Substance: LACOSAMIDE
     Route: 065
  5. BENZTROPINE. [Concomitant]
     Active Substance: BENZTROPINE
     Route: 065
  6. RISPERIDONE. [Concomitant]
     Active Substance: RISPERIDONE
     Route: 065
  7. LITHIUM. [Concomitant]
     Active Substance: LITHIUM
     Route: 065

REACTIONS (3)
  - Right ventricular failure [Recovering/Resolving]
  - Cardiogenic shock [Recovering/Resolving]
  - Myocarditis [Recovering/Resolving]
